FAERS Safety Report 24392148 (Version 3)
Quarter: 2024Q4

REPORT INFORMATION
  Report Type: Spontaneous
  Country: JP (occurrence: JP)
  Receive Date: 20241003
  Receipt Date: 20241108
  Transmission Date: 20250115
  Serious: Yes (Hospitalization)
  Sender: ELI LILLY AND COMPANY
  Company Number: JP-ELI_LILLY_AND_COMPANY-JP202408019031

PATIENT
  Age: 58 Year
  Sex: Female

DRUGS (10)
  1. EMGALITY [Suspect]
     Active Substance: GALCANEZUMAB-GNLM
     Indication: Migraine
     Dosage: 240 MG, SINGLE
     Route: 058
     Dates: start: 20240523, end: 20240523
  2. EMGALITY [Suspect]
     Active Substance: GALCANEZUMAB-GNLM
     Dosage: 120 MG, MONTHLY (1/M)
     Route: 058
     Dates: start: 20240624, end: 20240725
  3. ZETIA [Concomitant]
     Active Substance: EZETIMIBE
     Dosage: 1 DOSAGE FORM, DAILY
     Route: 048
     Dates: start: 20210417, end: 20240624
  4. METHYLCOBALAMIN [Concomitant]
     Active Substance: METHYLCOBALAMIN
     Indication: Occipital neuralgia
     Dosage: 3 DOSAGE FORM, DAILY
     Route: 048
     Dates: start: 20230711, end: 20240624
  5. METHYLCOBALAMIN [Concomitant]
     Active Substance: METHYLCOBALAMIN
     Indication: Hypoaesthesia
  6. AMITRIPTYLINE HYDROCHLORIDE [Concomitant]
     Active Substance: AMITRIPTYLINE HYDROCHLORIDE
     Dosage: 10 DOSAGE FORM, DAILY
     Route: 048
     Dates: start: 20160827
  7. AMITRIPTYLINE HYDROCHLORIDE [Concomitant]
     Active Substance: AMITRIPTYLINE HYDROCHLORIDE
     Dosage: 6 DOSAGE FORM, DAILY
  8. ZOMIG [Concomitant]
     Active Substance: ZOLMITRIPTAN
     Dosage: UNK, PRN
     Route: 048
     Dates: start: 20191205
  9. NIACINAMIDE\PAPAVERINE HYDROCHLORIDE [Concomitant]
     Active Substance: NIACINAMIDE\PAPAVERINE HYDROCHLORIDE
     Dosage: 6 DOSAGE FORM, SINGLE
     Route: 048
     Dates: start: 20240712, end: 20240712
  10. ADETPHOS [Concomitant]
     Active Substance: ADENOSINE TRIPHOSPHATE
     Dosage: 3.0 G, SINGLE
     Route: 048
     Dates: start: 20240712, end: 20240712

REACTIONS (1)
  - Hepatic function abnormal [Recovered/Resolved]

NARRATIVE: CASE EVENT DATE: 20240725
